FAERS Safety Report 7013023-3 (Version None)
Quarter: 2010Q3

REPORT INFORMATION
  Report Type: 
  Country: None (occurrence: None)
  Receive Date: 20100924
  Receipt Date: 20100914
  Transmission Date: 20110219
  Serious: Yes (Other)
  Sender: FDA-Public Use
  Company Number: DE-PFIZER INC-2010078798

PATIENT
  Age: 41 Year
  Sex: Male
  Weight: 120 kg

DRUGS (5)
  1. LYRICA [Suspect]
     Indication: NEURALGIA
     Dosage: 150 MG, 2X/DAY
     Route: 048
  2. LYRICA [Suspect]
     Indication: PAIN
  3. INTERFERON [Suspect]
     Indication: HEPATITIS C
     Dosage: UNK
  4. MAREEN [Suspect]
     Indication: RESTLESSNESS
     Dosage: 25 MG, DAILY
     Route: 048
  5. L-POLAMIDON [Concomitant]
     Indication: DRUG WITHDRAWAL MAINTENANCE THERAPY
     Dosage: UNK
     Route: 048

REACTIONS (3)
  - LEUKOPENIA [None]
  - LYMPHOEDEMA [None]
  - WEIGHT INCREASED [None]
